FAERS Safety Report 7224280-2 (Version None)
Quarter: 2011Q1

REPORT INFORMATION
  Report Type: 
  Country: None (occurrence: None)
  Receive Date: 20110106
  Receipt Date: 20110106
  Transmission Date: 20110831
  Serious: Yes (Hospitalization)
  Sender: FDA-Public Use
  Company Number: None

PATIENT
  Age: 62 Year
  Sex: Female
  Weight: 113.63 kg

DRUGS (6)
  1. COUMADIN [Suspect]
     Indication: DEEP VEIN THROMBOSIS
     Dosage: 5MG DAILY PO  CHRONIC
     Route: 048
  2. HYFRIN [Concomitant]
  3. VERAPAMIL EXTENDED-RELEASE [Concomitant]
  4. TYLENOL-500 [Concomitant]
  5. FLOMAX [Concomitant]
  6. METOPROLOL TARTRATE [Concomitant]

REACTIONS (4)
  - SUBDURAL HAEMATOMA [None]
  - DRUG LEVEL ABOVE THERAPEUTIC [None]
  - PRESYNCOPE [None]
  - SUBARACHNOID HAEMORRHAGE [None]
